FAERS Safety Report 11282505 (Version 3)
Quarter: 2015Q3

REPORT INFORMATION
  Report Type: Spontaneous
  Country: CH (occurrence: CH)
  Receive Date: 20150720
  Receipt Date: 20150818
  Transmission Date: 20151125
  Serious: Yes (Hospitalization, Other)
  Sender: FDA-Public Use
  Company Number: CH-ASTRAZENECA-2015SE69171

PATIENT
  Age: 633 Month
  Sex: Female

DRUGS (10)
  1. ARIMIDEX [Suspect]
     Active Substance: ANASTROZOLE
     Indication: OESTROGEN RECEPTOR ASSAY POSITIVE
     Route: 048
     Dates: start: 201401, end: 201407
  2. ANASTROZOLE. [Concomitant]
     Active Substance: ANASTROZOLE
  3. PROLIA [Suspect]
     Active Substance: DENOSUMAB
     Indication: OESTROGEN RECEPTOR ASSAY POSITIVE
     Route: 065
  4. NOLVADEX [Suspect]
     Active Substance: TAMOXIFEN CITRATE
     Indication: BREAST CANCER
     Route: 048
     Dates: start: 2007
  5. NOLVADEX [Suspect]
     Active Substance: TAMOXIFEN CITRATE
     Indication: OESTROGEN RECEPTOR ASSAY POSITIVE
     Route: 048
     Dates: start: 2007
  6. FASLODEX [Suspect]
     Active Substance: FULVESTRANT
     Indication: BREAST CANCER
     Route: 030
     Dates: start: 201407
  7. TAMOXIFEN [Concomitant]
     Active Substance: TAMOXIFEN
  8. FASLODEX [Suspect]
     Active Substance: FULVESTRANT
     Indication: OESTROGEN RECEPTOR ASSAY POSITIVE
     Route: 030
     Dates: start: 201407
  9. PROLIA [Suspect]
     Active Substance: DENOSUMAB
     Indication: BREAST CANCER
     Route: 065
  10. ARIMIDEX [Suspect]
     Active Substance: ANASTROZOLE
     Indication: BREAST CANCER
     Route: 048
     Dates: start: 201401, end: 201407

REACTIONS (7)
  - Pericardial effusion malignant [Unknown]
  - Cardiac tamponade [Unknown]
  - Metastases to lung [Unknown]
  - Malignant neoplasm progression [Unknown]
  - Nasopharyngitis [Unknown]
  - Viral infection [Recovered/Resolved]
  - Metastases to liver [Unknown]

NARRATIVE: CASE EVENT DATE: 201401
